FAERS Safety Report 16257807 (Version 1)
Quarter: 2019Q2

REPORT INFORMATION
  Report Type: Spontaneous
  Country: BG (occurrence: BG)
  Receive Date: 20190430
  Receipt Date: 20190430
  Transmission Date: 20190711
  Serious: Yes (Other)
  Sender: FDA-Public Use
  Company Number: BG-ARALEZ PHARMACEUTICALS R+D INC.-2019-ARA-001330

PATIENT
  Age: 56 Year
  Sex: Female

DRUGS (6)
  1. METOPROLOL SUCCINATE. [Suspect]
     Active Substance: METOPROLOL SUCCINATE
     Indication: PRODUCT USED FOR UNKNOWN INDICATION
     Dosage: UNK
     Route: 048
  2. ATORVASTATIN [Concomitant]
     Active Substance: ATORVASTATIN
  3. PANTOPRAZOLE [Concomitant]
     Active Substance: PANTOPRAZOLE
  4. ZOFENOPRIL [Concomitant]
     Active Substance: ZOFENOPRIL
  5. TRIMETAZIDINE [Concomitant]
     Active Substance: TRIMETAZIDINE
  6. BRILIQUE [Suspect]
     Active Substance: TICAGRELOR
     Indication: ACUTE CORONARY SYNDROME
     Dosage: 90 MG, BID
     Route: 048
     Dates: start: 20170812, end: 20180812

REACTIONS (1)
  - Vascular stent stenosis [Unknown]

NARRATIVE: CASE EVENT DATE: 20180202
